FAERS Safety Report 25154774 (Version 1)
Quarter: 2025Q2

REPORT INFORMATION
  Report Type: Spontaneous
  Country: US (occurrence: US)
  Receive Date: 20250403
  Receipt Date: 20250403
  Transmission Date: 20250716
  Serious: Yes (Other)
  Sender: COOPERSURGICAL
  Company Number: US-COOPERSURGICAL, INC.-2025CPS002349

PATIENT
  Age: 29 Year
  Sex: Female
  Weight: 68.027 kg

DRUGS (3)
  1. PARAGARD T 380A [Suspect]
     Active Substance: COPPER
     Indication: Contraception
     Route: 015
     Dates: start: 20150605
  2. ENSTILAR [BETAMETHASONE DIPROPIONATE;CALCIPOTRIOL] [Concomitant]
     Dates: start: 2018
  3. ACZONE [Concomitant]
     Active Substance: DAPSONE
     Dates: start: 2018

REACTIONS (11)
  - Reproductive complication associated with device [Not Recovered/Not Resolved]
  - Cervix carcinoma [Unknown]
  - Device breakage [Not Recovered/Not Resolved]
  - Foreign body in reproductive tract [Not Recovered/Not Resolved]
  - Complication of device removal [Not Recovered/Not Resolved]
  - Procedural pain [Recovered/Resolved]
  - Emotional disorder [Unknown]
  - Dysmenorrhoea [Not Recovered/Not Resolved]
  - Menstruation irregular [Not Recovered/Not Resolved]
  - Device dislocation [Recovered/Resolved]
  - Abnormal uterine bleeding [Not Recovered/Not Resolved]

NARRATIVE: CASE EVENT DATE: 20190604
